FAERS Safety Report 11599149 (Version 1)
Quarter: 2015Q4

REPORT INFORMATION
  Report Type: Spontaneous
  Country: US (occurrence: US)
  Receive Date: 20151006
  Receipt Date: 20151006
  Transmission Date: 20160304
  Serious: Yes (Life-Threatening, Hospitalization)
  Sender: FDA-Public Use
  Company Number: US-MYLANLABS-2015M1033308

PATIENT

DRUGS (2)
  1. METOPROLOL [Suspect]
     Active Substance: METOPROLOL
     Indication: PRODUCT USED FOR UNKNOWN INDICATION
     Dosage: 40 TABLETS OF 25MG
     Route: 048
  2. AMLODIPINE BESILATE [Suspect]
     Active Substance: AMLODIPINE BESYLATE
     Indication: PRODUCT USED FOR UNKNOWN INDICATION
     Dosage: 40 TABLETS OF 5MG
     Route: 048

REACTIONS (6)
  - Intentional overdose [Unknown]
  - Nodal arrhythmia [Unknown]
  - Suicide attempt [Unknown]
  - Somnolence [Unknown]
  - Hypotension [Recovering/Resolving]
  - Vomiting [Unknown]
